FAERS Safety Report 18250656 (Version 3)
Quarter: 2022Q3

REPORT INFORMATION
  Report Type: Spontaneous
  Country: US (occurrence: US)
  Receive Date: 20200910
  Receipt Date: 20220909
  Transmission Date: 20221026
  Serious: Yes (Other)
  Sender: FDA-Public Use
  Company Number: US-SAARTEMIS-SAC202009070141

PATIENT
  Age: 51 Year
  Sex: Female

DRUGS (1)
  1. ZANTAC [Suspect]
     Active Substance: RANITIDINE HYDROCHLORIDE
     Indication: Dyspepsia
     Dosage: 150 MG, QD
     Dates: start: 199501, end: 201701

REACTIONS (2)
  - Breast cancer stage IV [Unknown]
  - Colorectal cancer stage III [Unknown]

NARRATIVE: CASE EVENT DATE: 20050301
